FAERS Safety Report 24766322 (Version 1)
Quarter: 2024Q4

REPORT INFORMATION
  Report Type: Spontaneous
  Country: JP (occurrence: JP)
  Receive Date: 20241223
  Receipt Date: 20241223
  Transmission Date: 20250115
  Serious: Yes (Other)
  Sender: PFIZER
  Company Number: JP-PFIZER INC-202400328168

PATIENT
  Sex: Female

DRUGS (3)
  1. CABERGOLINE [Suspect]
     Active Substance: CABERGOLINE
     Indication: Cyst
     Dosage: UNK
     Route: 048
  2. CABERGOLINE [Suspect]
     Active Substance: CABERGOLINE
     Indication: Ovulation disorder
  3. CABERGOLINE [Suspect]
     Active Substance: CABERGOLINE
     Indication: Hyperprolactinaemia

REACTIONS (1)
  - Breast cancer [Unknown]
